FAERS Safety Report 23798232 (Version 1)
Quarter: 2024Q2

REPORT INFORMATION
  Report Type: Spontaneous
  Country: GB (occurrence: GB)
  Receive Date: 20240430
  Receipt Date: 20240430
  Transmission Date: 20240715
  Serious: Yes (Other)
  Sender: FDA-Public Use
  Company Number: GB-002147023-NVSC2024GB090227

PATIENT
  Age: 45 Year
  Sex: Female
  Weight: 64 kg

DRUGS (8)
  1. TERBINAFINE [Suspect]
     Active Substance: TERBINAFINE
     Indication: Ill-defined disorder
     Dosage: UNK
     Route: 065
     Dates: start: 20240321
  2. CLONIDINE [Concomitant]
     Active Substance: CLONIDINE
     Indication: Ill-defined disorder
     Dosage: 2 DOSAGE FORM, QOD
     Route: 065
     Dates: start: 20230515
  3. UTROGESTAN [Concomitant]
     Active Substance: PROGESTERONE
     Indication: Ill-defined disorder
     Dosage: 2 CAPSULE , QD (BED TIME)
     Route: 065
     Dates: start: 20221105
  4. CARBIMAZOLE [Concomitant]
     Active Substance: CARBIMAZOLE
     Indication: Ill-defined disorder
     Dosage: 1 TABLET DAILY, QD
     Route: 065
     Dates: start: 20221105
  5. TERBINAFINE [Concomitant]
     Active Substance: TERBINAFINE
     Indication: Ill-defined disorder
     Dosage: 1 DOSAGE FORM, QD (TAKE ONE DAILY TO TREAT FUNGAL INFECTION)
     Route: 065
     Dates: start: 20240202, end: 20240315
  6. TERBINAFINE [Concomitant]
     Active Substance: TERBINAFINE
     Indication: Fungal infection
  7. ESTRADIOL [Concomitant]
     Active Substance: ESTRADIOL
     Indication: Ill-defined disorder
     Dosage: UNK, QW2
     Route: 065
     Dates: start: 20221105
  8. SERTRALINE [Concomitant]
     Active Substance: SERTRALINE HYDROCHLORIDE
     Indication: Ill-defined disorder
     Dosage: 1 DOSAGE FORM, QD
     Route: 065
     Dates: start: 20231214

REACTIONS (1)
  - Liver function test abnormal [Recovering/Resolving]

NARRATIVE: CASE EVENT DATE: 20240321
